FAERS Safety Report 14279587 (Version 1)
Quarter: 2017Q4

REPORT INFORMATION
  Report Type: Report from Study
  Country: DE (occurrence: DE)
  Receive Date: 20171212
  Receipt Date: 20171212
  Transmission Date: 20180321
  Serious: Yes (Hospitalization)
  Sender: FDA-Public Use
  Company Number: DE-TEVA-2017-DE-830133

PATIENT
  Age: 76 Year
  Sex: Female
  Weight: 91 kg

DRUGS (16)
  1. FOLSAN [Concomitant]
     Active Substance: FOLIC ACID
     Indication: FOLATE DEFICIENCY
     Dosage: 5 MILLIGRAM
     Route: 048
  2. APIDRA [Concomitant]
     Active Substance: INSULIN GLULISINE
     Indication: TYPE 1 DIABETES MELLITUS
     Dosage: 24 IU (INTERNATIONAL UNIT)
     Route: 058
  3. EUTHYROX [Concomitant]
     Active Substance: LEVOTHYROXINE SODIUM
     Indication: HYPOTHYROIDISM
     Dosage: 50 MICROGRAM
     Route: 048
  4. SIMVASTATIN. [Concomitant]
     Active Substance: SIMVASTATIN
     Indication: HYPERCHOLESTEROLAEMIA
     Dosage: 20 MILLIGRAM
     Route: 048
  5. AMLODIPIN RATIOPHARM [Concomitant]
     Indication: HYPERTENSION
     Dosage: 5 MILLIGRAM
     Route: 048
  6. MOXONIDIN RATIOPHARM [Concomitant]
     Indication: HYPERTENSION
     Dosage: 0.2 MILLIGRAM
     Route: 048
  7. REVLIMID [Suspect]
     Active Substance: LENALIDOMIDE
     Indication: PLASMA CELL MYELOMA
     Route: 048
     Dates: start: 20171016, end: 20171103
  8. METOPROLOL RATIOPHARM [Concomitant]
     Indication: HYPERTENSION
     Dosage: 47.5 MILLIGRAM
     Route: 048
  9. ASPIRIN. [Concomitant]
     Active Substance: ASPIRIN
     Indication: CARDIAC FAILURE
     Dosage: 100 MILLIGRAM
     Route: 048
  10. DEXAMETHASONE. [Suspect]
     Active Substance: DEXAMETHASONE
     Indication: PLASMA CELL MYELOMA
     Dosage: 2.8571 MILLIGRAM
     Route: 065
     Dates: start: 20171016, end: 20171030
  11. LISINOPRIL RATIOPHARM [Concomitant]
     Active Substance: LISINOPRIL
     Indication: HYPERTENSION
     Dosage: 40 MILLIGRAM
     Route: 048
  12. RESTEX [Concomitant]
     Active Substance: BENSERAZIDE
     Indication: TYPE 1 DIABETES MELLITUS
     Dosage: 300 MILLIGRAM
     Route: 048
  13. VALORON [Concomitant]
     Active Substance: TILIDINE HYDROCHLORIDE
     Indication: PROPHYLAXIS
     Dosage: 200 MILLIGRAM
     Route: 048
  14. TORASEMID RATIOPHARM [Concomitant]
     Indication: CARDIAC FAILURE
     Dosage: 40 MILLIGRAM
     Route: 048
  15. TOUJEO [Concomitant]
     Active Substance: INSULIN GLARGINE
     Indication: TYPE 1 DIABETES MELLITUS
     Dosage: 20 IU (INTERNATIONAL UNIT)
     Route: 058
  16. CITALOPRAM RATIOPHARM [Concomitant]
     Indication: DEPRESSION
     Dosage: 20 MILLIGRAM
     Route: 048

REACTIONS (1)
  - Febrile neutropenia [Unknown]

NARRATIVE: CASE EVENT DATE: 20171104
